FAERS Safety Report 5424873-9 (Version None)
Quarter: 2007Q3

REPORT INFORMATION
  Report Type: 
  Country: None (occurrence: None)
  Receive Date: 20070824
  Receipt Date: 20070809
  Transmission Date: 20080115
  Serious: Yes (Life-Threatening, Hospitalization)
  Sender: FDA-Public Use
  Company Number: CH-BAXTER-2007BH006985

PATIENT
  Age: 16 Month
  Sex: Female

DRUGS (5)
  1. ALBUMIN (HUMAN) [Suspect]
     Indication: HYPOALBUMINAEMIA
     Route: 041
     Dates: start: 20070613, end: 20070613
  2. ESOMEPRAZOLE MAGNESIUM [Concomitant]
     Indication: GASTRITIS
     Route: 048
     Dates: start: 20070613
  3. FUROSEMIDE [Concomitant]
     Indication: PORTAL HYPERTENSION
     Route: 048
     Dates: start: 20070613
  4. HYDROCHLOROTHIAZIDE [Concomitant]
     Indication: PORTAL HYPERTENSION
     Route: 048
     Dates: start: 20070613
  5. CALCITRIOL [Concomitant]
     Indication: HYPERPARATHYROIDISM
     Route: 048
     Dates: start: 20070613

REACTIONS (5)
  - ACCIDENTAL OVERDOSE [None]
  - HYPERVOLAEMIA [None]
  - MEDICATION ERROR [None]
  - RENAL FAILURE [None]
  - RESPIRATORY ARREST [None]
